FAERS Safety Report 8610238-5 (Version None)
Quarter: 2012Q3

REPORT INFORMATION
  Report Type: 
  Country: None (occurrence: None)
  Receive Date: 20120810
  Receipt Date: 20120810
  Transmission Date: 20120928
  Serious: Yes (Hospitalization)
  Sender: FDA-Public Use
  Company Number: None

PATIENT
  Age: 29 Year
  Sex: Female
  Weight: 55.3388 kg

DRUGS (2)
  1. WELLBUTRIN XL [Suspect]
     Indication: PANIC DISORDER
     Dosage: 300MG 1 PO
     Route: 048
     Dates: start: 20120725, end: 20120731
  2. WELLBUTRIN XL [Suspect]
     Indication: ANXIETY
     Dosage: 300MG 1 PO
     Route: 048
     Dates: start: 20120725, end: 20120731

REACTIONS (3)
  - FEAR [None]
  - AGITATION [None]
  - TREMOR [None]
